FAERS Safety Report 19372765 (Version 1)
Quarter: 2021Q2

REPORT INFORMATION
  Report Type: Spontaneous
  Country: JP (occurrence: JP)
  Receive Date: 20210604
  Receipt Date: 20210604
  Transmission Date: 20210717
  Serious: Yes (Life-Threatening, Hospitalization, Other)
  Sender: FDA-Public Use
  Company Number: JP-ACCORD-226941

PATIENT
  Age: 72 Year
  Sex: Male

DRUGS (1)
  1. BICALUTAMIDE. [Suspect]
     Active Substance: BICALUTAMIDE
     Indication: PROSTATE CANCER

REACTIONS (7)
  - Deep vein thrombosis [Recovering/Resolving]
  - Bundle branch block right [Recovering/Resolving]
  - Pulmonary embolism [Recovering/Resolving]
  - Acute coronary syndrome [Recovering/Resolving]
  - Arteriosclerosis coronary artery [Recovering/Resolving]
  - Coronary artery occlusion [Recovering/Resolving]
  - Acute myocardial infarction [Recovering/Resolving]
